FAERS Safety Report 11644692 (Version 1)
Quarter: 2015Q4

REPORT INFORMATION
  Report Type: Other
  Country: US (occurrence: US)
  Receive Date: 20151020
  Receipt Date: 20151020
  Transmission Date: 20160304
  Serious: No
  Sender: FDA-Public Use
  Company Number: US-DEP_02806_2015

PATIENT
  Sex: Female

DRUGS (3)
  1. NUCYNTA ER [Suspect]
     Active Substance: TAPENTADOL HYDROCHLORIDE
     Indication: ARTHRALGIA
     Dosage: [FREQUENCY UNKNOWN]
     Route: 048
  2. NUCYNTA ER [Suspect]
     Active Substance: TAPENTADOL HYDROCHLORIDE
     Indication: OFF LABEL USE
     Dosage: [FREQUENCY UNKNOWN]
     Route: 048
  3. NUCYNTA ER [Suspect]
     Active Substance: TAPENTADOL HYDROCHLORIDE
     Indication: PAIN
     Dosage: [FREQUENCY UNKNOWN]
     Route: 048

REACTIONS (2)
  - Impaired work ability [Unknown]
  - Back injury [Unknown]
